FAERS Safety Report 15270577 (Version 1)
Quarter: 2018Q3

REPORT INFORMATION
  Report Type: Spontaneous
  Country: US (occurrence: US)
  Receive Date: 20180813
  Receipt Date: 20180813
  Transmission Date: 20181010
  Serious: No
  Sender: FDA-Public Use
  Company Number: US-APOTEX-2018AP015969

PATIENT
  Age: 50 Year
  Sex: Male

DRUGS (1)
  1. FLUTICASONE PROPIONATE NASAL SPRAY USP [Suspect]
     Active Substance: FLUTICASONE PROPIONATE
     Indication: HYPERSENSITIVITY
     Dosage: UNK, INTRA NASAL
     Route: 045
     Dates: start: 20180405, end: 20180511

REACTIONS (4)
  - Nasal congestion [Unknown]
  - Epistaxis [Not Recovered/Not Resolved]
  - Nasal mucosal hypertrophy [Unknown]
  - Nasal discomfort [Not Recovered/Not Resolved]

NARRATIVE: CASE EVENT DATE: 20180408
